FAERS Safety Report 15350203 (Version 2)
Quarter: 2018Q3

REPORT INFORMATION
  Report Type: Report from Study
  Country: US (occurrence: US)
  Receive Date: 20180905
  Receipt Date: 20180924
  Transmission Date: 20181010
  Serious: Yes (Other)
  Sender: FDA-Public Use
  Company Number: US-UCBSA-2016009327

PATIENT
  Age: 17 Year
  Sex: Male
  Weight: 91 kg

DRUGS (4)
  1. LEVETIRACETAM. [Suspect]
     Active Substance: LEVETIRACETAM
     Indication: PARTIAL SEIZURES
     Dosage: 1500 MG, 2X/DAY (BID)
     Route: 048
     Dates: start: 20180305
  2. OXCARBAZEPINE. [Concomitant]
     Active Substance: OXCARBAZEPINE
     Indication: EPILEPSY
     Dosage: UNK
  3. LEVETIRACETAM. [Suspect]
     Active Substance: LEVETIRACETAM
     Indication: SEIZURE
     Dosage: 1000 MG, 2X/DAY (BID)
     Route: 048
     Dates: start: 20030305, end: 201803
  4. LEVETIRACETAM. [Suspect]
     Active Substance: LEVETIRACETAM
     Indication: EPILEPSY

REACTIONS (9)
  - Ear pain [Recovered/Resolved]
  - Neck pain [Not Recovered/Not Resolved]
  - Paralysis [Unknown]
  - Cervical vertebral fracture [Recovered/Resolved]
  - Generalised tonic-clonic seizure [Recovered/Resolved]
  - Intentional product misuse [Unknown]
  - Sleep deficit [Recovered/Resolved]
  - Seizure [Recovered/Resolved]
  - Paraesthesia [Unknown]

NARRATIVE: CASE EVENT DATE: 20030305
